FAERS Safety Report 7707379-3 (Version None)
Quarter: 2011Q3

REPORT INFORMATION
  Report Type: 
  Country: None (occurrence: None)
  Receive Date: 20110824
  Receipt Date: 20101208
  Transmission Date: 20111222
  Serious: Yes (Other)
  Sender: FDA-Public Use
  Company Number: US-BAYER-2011-005082

PATIENT

DRUGS (7)
  1. SARGRAMOSTIM [Suspect]
     Indication: DIFFUSE LARGE B-CELL LYMPHOMA
     Dosage: 250 MCG/M2/DAY; DAY 3-10
     Route: 058
  2. PREDNISONE [Concomitant]
     Indication: DIFFUSE LARGE B-CELL LYMPHOMA
     Dosage: 100 MG/M2 ORALLY; ON DAYS 1-5 ON EACH 21 DAYS CYCLE (6-8 CYCLES)
     Route: 048
  3. DOXORUBICIN HCL [Concomitant]
     Indication: DIFFUSE LARGE B-CELL LYMPHOMA
     Dosage: 50 MG/M2 I.V. DAYS 1-5 ON EVERY 21 DAYS FOR 6-8 CYCLES
     Route: 042
  4. RITUXIMAB [Concomitant]
     Indication: DIFFUSE LARGE B-CELL LYMPHOMA
     Dosage: 375 MG/M2 INTRAVENOUSLY; DAYS 1-5 EACH 21 DAYS CYCLE (6-8 CYCLES)
     Route: 042
  5. VINCRISTINE [Concomitant]
     Indication: DIFFUSE LARGE B-CELL LYMPHOMA
     Dosage: 2 MG I.V. ON DAYS 1-5 OF 21 DAYS CYCLE (6-8 CYCLES)
     Route: 042
  6. ANTIEMETICS AND ANTINAUSEANTS [Concomitant]
  7. CYCLOPHOSPHAMIDE [Concomitant]
     Indication: DIFFUSE LARGE B-CELL LYMPHOMA
     Dosage: 750 MG/M2 I.V. ON DAYS 1-5 OF 21 DAYS FOR 6-8 CYCLES
     Route: 042

REACTIONS (1)
  - MYOCARDIAL INFARCTION [None]
